FAERS Safety Report 4383252-6 (Version None)
Quarter: 2004Q2

REPORT INFORMATION
  Report Type: 
  Country: None (occurrence: None)
  Receive Date: 20040622
  Receipt Date: 20040622
  Transmission Date: 20050107
  Serious: Yes (Life-Threatening, Hospitalization)
  Sender: FDA-Public Use
  Company Number: None

PATIENT
  Age: 14 Year
  Sex: Male
  Weight: 86.1834 kg

DRUGS (1)
  1. PAXIL [Suspect]
     Indication: ANXIETY DISORDER
     Dosage: 25 MG DAILY ORAL
     Route: 048
     Dates: start: 20040520, end: 20040611

REACTIONS (7)
  - ABNORMAL BEHAVIOUR [None]
  - BIPOLAR DISORDER [None]
  - DEPRESSION [None]
  - MANIA [None]
  - OVERDOSE [None]
  - PSYCHOMOTOR HYPERACTIVITY [None]
  - SUICIDAL IDEATION [None]
